FAERS Safety Report 20141582 (Version 1)
Quarter: 2021Q4

REPORT INFORMATION
  Report Type: Report from Study
  Country: US (occurrence: US)
  Receive Date: 20211202
  Receipt Date: 20211202
  Transmission Date: 20220303
  Serious: Yes (Hospitalization, Other)
  Sender: FDA-Public Use
  Company Number: US-EUSA PHARMA (UK) LIMITED-2021US000656

PATIENT
  Sex: Male
  Weight: 105.2 kg

DRUGS (14)
  1. SYLVANT [Suspect]
     Active Substance: SILTUXIMAB
     Indication: Pancreatic carcinoma
     Dosage: 1133 MG;Q21 DAYS
     Route: 042
     Dates: start: 20211028, end: 20211028
  2. SPARTALIZUMAB [Suspect]
     Active Substance: SPARTALIZUMAB
     Indication: Pancreatic carcinoma
     Dosage: 300 MG;Q21 DAYS
     Route: 042
     Dates: start: 20211028, end: 20211028
  3. ACETAMINOPHEN\HYDROCODONE [Concomitant]
     Active Substance: ACETAMINOPHEN\HYDROCODONE
     Indication: Pain
     Dosage: UNK, PRN
     Route: 048
     Dates: end: 20211118
  4. ASCORBIC ACID [Concomitant]
     Active Substance: ASCORBIC ACID
     Indication: Product used for unknown indication
     Dosage: 1000 MG;DAILY
     Route: 048
  5. CHOLECALCIFEROL [Concomitant]
     Active Substance: CHOLECALCIFEROL
     Indication: Product used for unknown indication
     Dosage: 25 MCG; QD
     Route: 048
  6. CYANOCOBALAMIN [Concomitant]
     Active Substance: CYANOCOBALAMIN
     Indication: Product used for unknown indication
     Dosage: 1000 MCG;QD
     Route: 048
  7. GABAPENTIN [Concomitant]
     Active Substance: GABAPENTIN
     Indication: Neuropathy peripheral
     Dosage: 100 MG
     Route: 048
     Dates: end: 20211118
  8. MIRTAZAPINE [Concomitant]
     Active Substance: MIRTAZAPINE
     Indication: Product used for unknown indication
     Dosage: 15 MG
     Route: 048
  9. OXYCODONE [Concomitant]
     Active Substance: OXYCODONE
     Indication: Pain
     Dosage: 5 MG, Q6H, PRN
     Route: 048
     Dates: start: 20211118
  10. PANCRELIPASE [Concomitant]
     Active Substance: PANCRELIPASE
     Indication: Product used for unknown indication
     Dosage: 36000 UNITS
     Route: 048
  11. PREDNISONE [Concomitant]
     Active Substance: PREDNISONE
     Indication: Arthralgia
     Dosage: 5 MG, QD
     Route: 048
  12. XARELTO [Concomitant]
     Active Substance: RIVAROXABAN
     Indication: Thrombosis
     Dosage: 20 MG, QD
     Route: 048
     Dates: end: 20211118
  13. TEMAZEPAM [Concomitant]
     Active Substance: TEMAZEPAM
     Indication: Insomnia
     Dosage: 30 MG, QHS (BEDTIME)
     Route: 048
  14. ZINC SULFATE [Concomitant]
     Active Substance: ZINC SULFATE
     Indication: Neuropathy peripheral
     Dosage: UNK, QD
     Route: 048

REACTIONS (2)
  - Blood fibrinogen decreased [Unknown]
  - Thrombocytopenia [Unknown]

NARRATIVE: CASE EVENT DATE: 20211118
